FAERS Safety Report 7010334-2 (Version None)
Quarter: 2010Q3

REPORT INFORMATION
  Report Type: 
  Country: None (occurrence: None)
  Receive Date: 20100923
  Receipt Date: 20100914
  Transmission Date: 20110219
  Serious: Yes (Other)
  Sender: FDA-Public Use
  Company Number: B0675806A

PATIENT
  Sex: Female

DRUGS (3)
  1. MALARONE [Suspect]
     Indication: MALARIA PROPHYLAXIS
     Dosage: 1TAB PER DAY
     Route: 048
     Dates: start: 20100717, end: 20100907
  2. LYRICA [Concomitant]
     Route: 048
  3. LAMICTAL [Concomitant]
     Route: 048

REACTIONS (1)
  - EPILEPSY [None]
